FAERS Safety Report 13059719 (Version 2)
Quarter: 2017Q1

REPORT INFORMATION
  Report Type: Spontaneous
  Country: KW (occurrence: KW)
  Receive Date: 20161223
  Receipt Date: 20170103
  Transmission Date: 20170428
  Serious: Yes (Life-Threatening, Hospitalization, Other)
  Sender: FDA-Public Use
  Company Number: KW-ACORDA-ACO_131820_2016

PATIENT
  Age: 39 Year
  Sex: Female

DRUGS (2)
  1. AMPYRA [Suspect]
     Active Substance: DALFAMPRIDINE
     Indication: PRODUCT USED FOR UNKNOWN INDICATION
     Dosage: UNK
     Route: 065
  2. TYSABRI [Suspect]
     Active Substance: NATALIZUMAB
     Indication: MULTIPLE SCLEROSIS
     Dosage: 300 MG/KG (1 FOR 1 MONTH)
     Route: 042

REACTIONS (4)
  - Seizure [Unknown]
  - Bladder perforation [Unknown]
  - Septic shock [Unknown]
  - Hospitalisation [Unknown]

NARRATIVE: CASE EVENT DATE: 20161205
